FAERS Safety Report 14428037 (Version 1)
Quarter: 2018Q1

REPORT INFORMATION
  Report Type: Report from Study
  Country: US (occurrence: US)
  Receive Date: 20180123
  Receipt Date: 20180123
  Transmission Date: 20180509
  Serious: No
  Sender: FDA-Public Use
  Company Number: US-AMGEN-USASL2017159426

PATIENT
  Age: 70 Year
  Sex: Female

DRUGS (1)
  1. REPATHA [Suspect]
     Active Substance: EVOLOCUMAB
     Indication: PRODUCT USED FOR UNKNOWN INDICATION
     Dosage: 140 MG, Q2WK
     Route: 065

REACTIONS (5)
  - Epistaxis [Unknown]
  - Influenza like illness [Unknown]
  - Vaccination site swelling [Unknown]
  - Rhinorrhoea [Not Recovered/Not Resolved]
  - Vaccination site discolouration [Unknown]

NARRATIVE: CASE EVENT DATE: 201710
